FAERS Safety Report 13573263 (Version 1)
Quarter: 2017Q2

REPORT INFORMATION
  Report Type: Spontaneous
  Country: JP (occurrence: JP)
  Receive Date: 20170523
  Receipt Date: 20170523
  Transmission Date: 20170830
  Serious: Yes (Other)
  Sender: FDA-Public Use
  Company Number: JP-PFIZER INC-2017217231

PATIENT
  Sex: Male

DRUGS (4)
  1. INLYTA [Suspect]
     Active Substance: AXITINIB
     Indication: RENAL CANCER
     Dosage: UNK
     Route: 048
  2. OXINORM [Concomitant]
     Active Substance: OXYCODONE HYDROCHLORIDE
     Indication: PAIN
     Dosage: UNK
     Route: 048
  3. OXYCONTIN [Concomitant]
     Active Substance: OXYCODONE HYDROCHLORIDE
     Indication: PAIN
     Dosage: UNK
     Route: 048
  4. INLYTA [Suspect]
     Active Substance: AXITINIB
     Dosage: 5 MG, UNK
     Route: 048

REACTIONS (11)
  - Headache [Unknown]
  - Anxiety [Unknown]
  - Loss of consciousness [Unknown]
  - Speech disorder [Unknown]
  - Aggression [Unknown]
  - Malaise [Unknown]
  - Seizure [Unknown]
  - Condition aggravated [Unknown]
  - Soliloquy [Unknown]
  - Stubbornness [Unknown]
  - Personality change [Unknown]
